FAERS Safety Report 25348486 (Version 1)
Quarter: 2025Q2

REPORT INFORMATION
  Report Type: Spontaneous
  Country: GB (occurrence: GB)
  Receive Date: 20250522
  Receipt Date: 20250522
  Transmission Date: 20250717
  Serious: Yes (Other)
  Sender: TEVA
  Company Number: GB-MHRA-TPP2655883C9099900YC1747643876332

PATIENT
  Age: 32 Year
  Sex: Male
  Weight: 144 kg

DRUGS (4)
  1. RAMIPRIL [Suspect]
     Active Substance: RAMIPRIL
     Indication: Ill-defined disorder
     Dosage: 2.5 MG DAILY, DURATION: 1.132 YEARS
     Route: 065
     Dates: start: 20240322, end: 20250508
  2. PROMETHAZINE HYDROCHLORIDE [Concomitant]
     Active Substance: PROMETHAZINE HYDROCHLORIDE
     Indication: Ill-defined disorder
     Dosage: TAKE TWO AT NIGHT, 2 DOSAGE FORMS DAILY
     Dates: start: 20241021
  3. AMLODIPINE [Concomitant]
     Active Substance: AMLODIPINE BESYLATE
     Indication: Ill-defined disorder
     Dosage: TAKE ONE DAILY
     Dates: start: 20250508
  4. QUETIAPINE [Concomitant]
     Active Substance: QUETIAPINE
     Indication: Ill-defined disorder
     Dosage: ONE  TABLET AT  NIGHT AS ADV BY PSYCH, 1 DOSAGE FORMS DAILY
     Dates: start: 20250210

REACTIONS (2)
  - Depression [Recovered/Resolved]
  - Depressed mood [Recovered/Resolved]
